FAERS Safety Report 4866571-6 (Version None)
Quarter: 2005Q4

REPORT INFORMATION
  Report Type: 
  Country: None (occurrence: None)
  Receive Date: 20051221
  Receipt Date: 20051208
  Transmission Date: 20060501
  Serious: Yes (Other)
  Sender: FDA-Public Use
  Company Number: 2005167232

PATIENT
  Sex: Male
  Weight: 90.7194 kg

DRUGS (3)
  1. VIAGRA [Suspect]
     Indication: ERECTILE DYSFUNCTION
     Dosage: 100 MG (100 MG, AS NECESSARY), ORAL
     Route: 048
     Dates: end: 20050101
  2. ANTI-DIABETICS (ANTI-DIABETICS) [Concomitant]
  3. INSULIN [Concomitant]

REACTIONS (3)
  - DRUG INEFFECTIVE [None]
  - LARYNGEAL CANCER [None]
  - LUNG NEOPLASM MALIGNANT [None]
